FAERS Safety Report 7873000-7 (Version None)
Quarter: 2011Q4

REPORT INFORMATION
  Report Type: 
  Country: None (occurrence: None)
  Receive Date: 20111030
  Receipt Date: 20110428
  Transmission Date: 20120403
  Serious: No
  Sender: FDA-Public Use
  Company Number: US-AMGEN-USASP2011022215

PATIENT
  Age: 58 Year
  Sex: Female

DRUGS (3)
  1. METHOTREXATE [Concomitant]
     Dates: start: 20110101
  2. ENBREL [Suspect]
     Indication: PSORIASIS
     Dosage: 50 MG, QWK
     Dates: start: 20110408
  3. ENBREL [Suspect]
     Indication: PSORIATIC ARTHROPATHY

REACTIONS (9)
  - NAUSEA [None]
  - DRUG INEFFECTIVE [None]
  - ASTHMA [None]
  - VOMITING [None]
  - HYPERSENSITIVITY [None]
  - DIARRHOEA [None]
  - BOWEL MOVEMENT IRREGULARITY [None]
  - PSORIATIC ARTHROPATHY [None]
  - MUSCULAR WEAKNESS [None]
